FAERS Safety Report 9224402 (Version 1)
Quarter: 2013Q2

REPORT INFORMATION
  Report Type: Spontaneous
  Country: US (occurrence: None)
  Receive Date: 20130409
  Receipt Date: 20130409
  Transmission Date: 20140414
  Serious: No
  Sender: FDA-Public Use
  Company Number: None

PATIENT
  Sex: Female
  Weight: 55.79 kg

DRUGS (1)
  1. NIASPAN [Suspect]
     Indication: BLOOD CHOLESTEROL INCREASED
     Dosage: 500 MG 1 EVERY NIGHT, BY MOUTH
     Route: 048
     Dates: start: 20121120, end: 201302

REACTIONS (6)
  - Rash generalised [None]
  - Pruritus [None]
  - Dysuria [None]
  - Blister [None]
  - Drug ineffective [None]
  - Burning sensation [None]
